FAERS Safety Report 5954552-0 (Version None)
Quarter: 2008Q4

REPORT INFORMATION
  Report Type: 
  Country: None (occurrence: None)
  Receive Date: 20081117
  Receipt Date: 20081112
  Transmission Date: 20090506
  Serious: Yes (Hospitalization, Other)
  Sender: FDA-Public Use
  Company Number: CA-WYE-G02565108

PATIENT
  Age: 51 Year
  Sex: Female

DRUGS (1)
  1. EFFEXOR XR [Suspect]
     Indication: PANIC ATTACK
     Route: 048
     Dates: start: 20060101

REACTIONS (3)
  - CARDIAC MYXOMA [None]
  - HEART RATE INCREASED [None]
  - PULMONARY HYPERTENSION [None]
